FAERS Safety Report 6870944-X (Version None)
Quarter: 2010Q3

REPORT INFORMATION
  Report Type: 
  Country: None (occurrence: None)
  Receive Date: 20100723
  Receipt Date: 20100709
  Transmission Date: 20110219
  Serious: Yes (Other)
  Sender: FDA-Public Use
  Company Number: TN-PAR PHARMACEUTICAL, INC-2010SCPR000745

PATIENT

DRUGS (1)
  1. METHYLPREDNISOLONE [Suspect]
     Indication: MULTIPLE SCLEROSIS
     Dosage: A DOSE OF 1 GM/DAY OF MP WAS ADMINISTERED INTRAVENOUSLY FOR THREE DAYS.
     Route: 042

REACTIONS (1)
  - AUTOIMMUNE HEPATITIS [None]
